FAERS Safety Report 8110237-6 (Version None)
Quarter: 2012Q1

REPORT INFORMATION
  Report Type: 
  Country: None (occurrence: None)
  Receive Date: 20120202
  Receipt Date: 20120125
  Transmission Date: 20120608
  Serious: No
  Sender: FDA-Public Use
  Company Number: US-AMGEN-USASP2011059493

PATIENT
  Age: 74 Year
  Sex: Female

DRUGS (4)
  1. VICODIN [Concomitant]
     Dosage: 5/500 1 TABLET BID PRN
     Route: 048
     Dates: start: 20110921
  2. MOTRIN [Concomitant]
     Indication: PAIN
     Dosage: 600 MG, 1 TABLET EVERY 6 HOUR PRN
     Route: 048
     Dates: start: 20111108
  3. CELEBREX [Concomitant]
     Dosage: 20 MG,  1 CAPSULE/DAY PRN
     Route: 048
     Dates: start: 20110308
  4. ENBREL [Suspect]
     Indication: RHEUMATOID ARTHRITIS
     Dosage: 50 MG, QWK
     Route: 058
     Dates: start: 20110908

REACTIONS (1)
  - COUGH [None]
